FAERS Safety Report 7204689-3 (Version None)
Quarter: 2010Q4

REPORT INFORMATION
  Report Type: 
  Country: None (occurrence: None)
  Receive Date: 20101230
  Receipt Date: 20101222
  Transmission Date: 20110411
  Serious: Yes (Death, Hospitalization, Other)
  Sender: FDA-Public Use
  Company Number: JP-ROCHE-745876

PATIENT
  Age: 84 Year
  Sex: Male
  Weight: 58 kg

DRUGS (16)
  1. AVASTIN [Suspect]
     Indication: LUNG ADENOCARCINOMA
     Route: 041
     Dates: start: 20101004
  2. ALIMTA [Suspect]
     Indication: LUNG ADENOCARCINOMA
     Dosage: NOTE: DOSAGE IS UNCERTAIN.
     Route: 041
     Dates: start: 20101004, end: 20101028
  3. PICIBANIL [Suspect]
     Route: 065
  4. PREDONINE [Concomitant]
     Route: 065
     Dates: start: 20100922, end: 20101122
  5. ALLELOCK [Concomitant]
     Route: 048
     Dates: start: 20100603, end: 20101119
  6. NORVASC [Concomitant]
     Route: 048
     Dates: start: 19800101, end: 20101119
  7. LOXOPROFEN [Concomitant]
     Dosage: FORM: PER ORAL AGENT.
     Route: 048
     Dates: start: 20100401, end: 20101122
  8. TEPRENONE [Concomitant]
     Dosage: NAME: ANTAGOSTIN
     Route: 048
     Dates: start: 20100401, end: 20101122
  9. BROTIZOLAM [Concomitant]
     Route: 048
     Dates: start: 20100624, end: 20101118
  10. OXYCONTIN [Concomitant]
     Route: 048
     Dates: start: 20101013, end: 20101126
  11. PANVITAN [Concomitant]
     Route: 048
     Dates: start: 20100930, end: 20101119
  12. CODEINE PHOSPHATE [Concomitant]
     Route: 048
     Dates: start: 20101004, end: 20101119
  13. ZOSYN [Concomitant]
     Route: 041
     Dates: start: 20101114, end: 20101114
  14. ZOSYN [Concomitant]
     Route: 041
     Dates: start: 20101115, end: 20101120
  15. SEROQUEL [Concomitant]
     Dosage: FORM: PERORAL AGENT
     Route: 048
     Dates: start: 20101122, end: 20101126
  16. RISPERDAL [Concomitant]

REACTIONS (3)
  - DISEASE PROGRESSION [None]
  - GASTROINTESTINAL HAEMORRHAGE [None]
  - INTERSTITIAL LUNG DISEASE [None]
